FAERS Safety Report 24978634 (Version 1)
Quarter: 2025Q1

REPORT INFORMATION
  Report Type: Spontaneous
  Country: RU (occurrence: RU)
  Receive Date: 20250218
  Receipt Date: 20250218
  Transmission Date: 20250409
  Serious: Yes (Death, Life-Threatening)
  Sender: ABBVIE
  Company Number: RU-ABBVIE-6137094

PATIENT
  Age: 7 Year
  Sex: Male

DRUGS (2)
  1. SEVOFLURANE [Suspect]
     Active Substance: SEVOFLURANE
     Indication: General anaesthesia
     Route: 055
     Dates: start: 20240612
  2. PROPOFOL [Suspect]
     Active Substance: PROPOFOL
     Indication: General anaesthesia
     Route: 065
     Dates: start: 20240612

REACTIONS (5)
  - Oxygen saturation decreased [Fatal]
  - Acute respiratory failure [Fatal]
  - Laryngospasm [Fatal]
  - Overdose [Unknown]
  - Overdose [Unknown]

NARRATIVE: CASE EVENT DATE: 20240612
